FAERS Safety Report 12133259 (Version 1)
Quarter: 2016Q1

REPORT INFORMATION
  Report Type: Spontaneous
  Country: JP (occurrence: JP)
  Receive Date: 20160301
  Receipt Date: 20160301
  Transmission Date: 20160526
  Serious: Yes (Other)
  Sender: FDA-Public Use
  Company Number: JP-APOTEX-2016AP006867

PATIENT
  Age: 67 Year
  Sex: Male

DRUGS (1)
  1. PAXIL [Suspect]
     Active Substance: PAROXETINE HYDROCHLORIDE
     Dosage: 10 MG, 1D
     Route: 048

REACTIONS (8)
  - Rhabdomyolysis [Unknown]
  - Serotonin syndrome [Unknown]
  - Muscle rigidity [Unknown]
  - Myoclonus [Unknown]
  - Prerenal failure [Unknown]
  - Diabetes mellitus inadequate control [Unknown]
  - Dehydration [Unknown]
  - Hyperreflexia [Unknown]
